FAERS Safety Report 23871185 (Version 2)
Quarter: 2025Q3

REPORT INFORMATION
  Report Type: Spontaneous
  Country: US (occurrence: US)
  Receive Date: 20240519
  Receipt Date: 20250704
  Transmission Date: 20251020
  Serious: No
  Sender: SANOFI AVENTIS
  Company Number: US-SA-SAC20240513001439

PATIENT
  Age: 55 Year
  Sex: Male

DRUGS (3)
  1. DUPIXENT [Suspect]
     Active Substance: DUPILUMAB
     Indication: Eczema
     Route: 058
     Dates: start: 20230909, end: 20230909
  2. DUPIXENT [Suspect]
     Active Substance: DUPILUMAB
     Dosage: 300 MG, QOW
     Route: 058
     Dates: start: 20230923
  3. OZEMPIC [Suspect]
     Active Substance: SEMAGLUTIDE

REACTIONS (3)
  - Arthralgia [Not Recovered/Not Resolved]
  - Oral discomfort [Unknown]
  - Headache [Unknown]

NARRATIVE: CASE EVENT DATE: 20240401
